FAERS Safety Report 5910147-6 (Version None)
Quarter: 2008Q4

REPORT INFORMATION
  Report Type: 
  Country: None (occurrence: None)
  Receive Date: 20081007
  Receipt Date: 20071108
  Transmission Date: 20090506
  Serious: No
  Sender: FDA-Public Use
  Company Number: US-BAYER-200712805BWH

PATIENT
  Sex: Female

DRUGS (1)
  1. ADALAT CC [Suspect]
     Indication: HYPERTENSION
     Route: 048
     Dates: start: 20070728

REACTIONS (2)
  - BLOOD PRESSURE INCREASED [None]
  - EPISTAXIS [None]
